FAERS Safety Report 6789951-0 (Version None)
Quarter: 2010Q2

REPORT INFORMATION
  Report Type: 
  Country: None (occurrence: None)
  Receive Date: 20100624
  Receipt Date: 20100621
  Transmission Date: 20101027
  Serious: Yes (Other)
  Sender: FDA-Public Use
  Company Number: JP-PFIZER INC-2010034878

PATIENT
  Age: 67 Year
  Sex: Female

DRUGS (3)
  1. LIPITOR [Suspect]
     Indication: HYPERCHOLESTEROLAEMIA
     Dosage: 10 MG, DAILY
     Route: 048
     Dates: start: 20100213, end: 20100213
  2. PARIET [Suspect]
     Dosage: 5 MG, DAILY
     Route: 048
     Dates: start: 20100213, end: 20100213
  3. NORVASC [Concomitant]
     Dosage: UNK
     Route: 048

REACTIONS (1)
  - DRUG ERUPTION [None]
